FAERS Safety Report 9942472 (Version 1)
Quarter: 2014Q1

REPORT INFORMATION
  Report Type: Report from Study
  Country: US (occurrence: US)
  Receive Date: 20140303
  Receipt Date: 20140303
  Transmission Date: 20141002
  Serious: No
  Sender: FDA-Public Use
  Company Number: US-ABBVIE-13P-163-1044892-00

PATIENT
  Age: 63 Year
  Sex: Female

DRUGS (14)
  1. HUMIRA [Suspect]
     Indication: CROHN^S DISEASE
     Dates: start: 20130119
  2. BALSALAZIDE [Concomitant]
     Indication: CROHN^S DISEASE
  3. CANSANA SUPPOSITORY HS [Concomitant]
     Indication: RECTAL HAEMORRHAGE
     Dosage: RECTALLY
  4. CANSANA SUPPOSITORY HS [Concomitant]
     Indication: RECTAL DISCHARGE
  5. BENAZEPRIL [Concomitant]
     Indication: HYPERTENSION
  6. DILTIAZEM ER [Concomitant]
     Indication: HYPERTENSION
     Dosage: 120 MG DAILY
  7. MAXIDE [Concomitant]
     Indication: SWELLING
     Dosage: 25 MG, 1/2-1 DAILY
  8. SERTRALINE [Concomitant]
     Indication: ANXIETY
     Dosage: 50 MG, 1/2-1 DAILY
  9. PROPRANOLOL [Concomitant]
     Indication: ANXIETY
     Dosage: AT THE BEGINNING OF WORK SHIFT
  10. KCL [Concomitant]
     Indication: ELECTROLYTE SUBSTITUTION THERAPY
     Dosage: 10 MQ DAILY
  11. EVISTA [Concomitant]
     Indication: OSTEOPOROSIS
     Dosage: 60 MG DAILY
  12. CALCIUM [Concomitant]
     Indication: OSTEOPOROSIS
  13. TRAMODOL WITH ACETAMINOPHEN [Concomitant]
     Indication: PAIN
     Dosage: 50 MG AND 500 MG EVERY 8 HOURS, AS REQUIRED
  14. CYCLOBENZAPRINE [Concomitant]
     Indication: MUSCLE RELAXANT THERAPY
     Dosage: 2 UP TO THREE TIMES A DAY

REACTIONS (3)
  - Injection site bruising [Not Recovered/Not Resolved]
  - Injection site reaction [Not Recovered/Not Resolved]
  - Rash generalised [Not Recovered/Not Resolved]
